FAERS Safety Report 8774557 (Version 1)
Quarter: 2012Q4

REPORT INFORMATION
  Report Type: 
  Country: BR (occurrence: BR)
  Receive Date: 20120907
  Receipt Date: 20120907
  Transmission Date: 20130627
  Serious: Yes (Other)
  Sender: FDA-Public Use
  Company Number: BR-AMGEN-BRASP2012054997

PATIENT
  Age: 39 Year
  Sex: Female
  Weight: 50 kg

DRUGS (8)
  1. ENBREL [Suspect]
     Indication: RHEUMATOID ARTHRITIS
     Dosage: UNK UNK, qwk
     Route: 058
     Dates: start: 201203, end: 20120819
  2. METHOTREXATE [Concomitant]
     Indication: ARTHRITIS
     Dosage: UNK, 2x/week
     Dates: start: 1994
  3. PREDNISONE [Concomitant]
     Indication: ARTHRITIS
     Dosage: 1x/day
     Dates: start: 1991
  4. CALTRATE                           /07357001/ [Concomitant]
     Indication: ARTHRITIS
     Dosage: UNK, 1x/week
     Dates: start: 2000
  5. BONALEN                            /01220302/ [Concomitant]
     Indication: ARTHRITIS
     Dosage: UNK, 1x/week
     Dates: start: 2000
  6. NIMESULIDE [Concomitant]
     Indication: ARTHRITIS
     Dosage: UNK, 1x/day
     Dates: start: 2002
  7. DICLOFENAC SODIUM [Concomitant]
     Indication: ARTHRITIS
     Dosage: UNK, 1x/day
     Dates: start: 2002
  8. FOLIC ACID [Concomitant]
     Dosage: UNK
     Dates: start: 1994

REACTIONS (5)
  - Pain [Unknown]
  - Joint swelling [Unknown]
  - Rheumatic fever [Unknown]
  - Arthralgia [Not Recovered/Not Resolved]
  - Drug ineffective [Unknown]
